FAERS Safety Report 13574948 (Version 1)
Quarter: 2017Q2

REPORT INFORMATION
  Report Type: Report from Study
  Country: US (occurrence: US)
  Receive Date: 20170523
  Receipt Date: 20170523
  Transmission Date: 20170830
  Serious: Yes (Death)
  Sender: FDA-Public Use
  Company Number: US-EXELIXIS-CABO-17009186

PATIENT
  Age: 73 Year
  Sex: Female

DRUGS (5)
  1. XGEVA [Concomitant]
     Active Substance: DENOSUMAB
  2. COLACE [Concomitant]
     Active Substance: DOCUSATE SODIUM
  3. HYDROCODONE [Concomitant]
     Active Substance: HYDROCODONE
  4. CABOMETYX [Suspect]
     Active Substance: CABOZANTINIB S-MALATE
     Indication: RENAL CANCER
     Dosage: 60 MG, QD
     Route: 048
     Dates: start: 201702, end: 201704
  5. LEVOTHYROXINE. [Concomitant]
     Active Substance: LEVOTHYROXINE

REACTIONS (1)
  - Death [Fatal]

NARRATIVE: CASE EVENT DATE: 20170415
